FAERS Safety Report 5195048-6 (Version None)
Quarter: 2006Q4

REPORT INFORMATION
  Report Type: 
  Country: None (occurrence: None)
  Receive Date: 20061229
  Receipt Date: 20061222
  Transmission Date: 20070319
  Serious: Yes (Other)
  Sender: FDA-Public Use
  Company Number: US-JNJFOC-20061206268

PATIENT
  Age: 21 Year
  Sex: Female
  Weight: 68.04 kg

DRUGS (5)
  1. EXTRA STRENGTH TYLENOL [Suspect]
     Route: 048
  2. EXTRA STRENGTH TYLENOL [Suspect]
     Indication: PYREXIA
     Route: 048
  3. TUSSIN [Concomitant]
     Indication: COUGH
  4. CIPROFLOXACIN [Concomitant]
     Indication: UPPER RESPIRATORY TRACT INFECTION
  5. LOVENOX [Concomitant]
     Indication: DISSEMINATED INTRAVASCULAR COAGULATION

REACTIONS (2)
  - PHARYNGEAL OEDEMA [None]
  - THROAT IRRITATION [None]
